FAERS Safety Report 19084432 (Version 1)
Quarter: 2021Q2

REPORT INFORMATION
  Report Type: Spontaneous
  Country: US (occurrence: US)
  Receive Date: 20210401
  Receipt Date: 20210401
  Transmission Date: 20210717
  Serious: Yes (Other)
  Sender: FDA-Public Use
  Company Number: US-ASTRAZENECA-2021A224014

PATIENT
  Sex: Male
  Weight: 77.1 kg

DRUGS (2)
  1. LYNPARZA [Suspect]
     Active Substance: OLAPARIB
     Indication: PROSTATE CANCER STAGE IV
     Route: 048
     Dates: start: 202011
  2. LYNPARZA [Suspect]
     Active Substance: OLAPARIB
     Indication: CHECKPOINT KINASE 2 GENE MUTATION
     Route: 048
     Dates: start: 202011

REACTIONS (5)
  - Prostatic specific antigen increased [Recovering/Resolving]
  - Adverse event [Recovered/Resolved]
  - Fatigue [Recovered/Resolved]
  - Therapeutic product effect delayed [Unknown]
  - Somnolence [Unknown]
